FAERS Safety Report 4461981-3 (Version None)
Quarter: 2004Q3

REPORT INFORMATION
  Report Type: 
  Country: None (occurrence: None)
  Receive Date: 20040929
  Receipt Date: 20040917
  Transmission Date: 20050211
  Serious: Yes (Hospitalization)
  Sender: FDA-Public Use
  Company Number: JP-JNJFOC-20040905242

PATIENT
  Age: 46 Year
  Sex: Female
  Weight: 97 kg

DRUGS (4)
  1. TAVANIC [Suspect]
     Route: 049
     Dates: start: 20040521, end: 20040521
  2. CLOMIPRAMINE HCL [Concomitant]
     Indication: DEPRESSION
     Route: 049
  3. ALPRAZOLAM [Concomitant]
     Indication: DEPRESSION
     Route: 047
  4. UNSPECIFIED MEDICATION [Concomitant]

REACTIONS (10)
  - AMAUROSIS FUGAX [None]
  - APHASIA [None]
  - BLINDNESS [None]
  - EYE OEDEMA [None]
  - FACE OEDEMA [None]
  - NASAL OEDEMA [None]
  - OEDEMA MOUTH [None]
  - PRURITUS [None]
  - RASH VESICULAR [None]
  - RESPIRATORY DISTRESS [None]
